FAERS Safety Report 6267670-7 (Version None)
Quarter: 2009Q3

REPORT INFORMATION
  Report Type: 
  Country: None (occurrence: None)
  Receive Date: 20090710
  Receipt Date: 20090626
  Transmission Date: 20100115
  Serious: Yes (Life-Threatening, Hospitalization)
  Sender: FDA-Public Use
  Company Number: 2009AL004383

PATIENT
  Age: 85 Year
  Sex: Female

DRUGS (1)
  1. DICLOFENAC SODIUM DELAYED-RELEASE TABLETS, 50 MG (PUREPAC) (DICLOFENAC [Suspect]
     Dosage: 50 MG; TID; PO
     Route: 048
     Dates: start: 20090607, end: 20090615

REACTIONS (2)
  - GASTRIC ULCER PERFORATION [None]
  - RENAL IMPAIRMENT [None]
